FAERS Safety Report 7258145-7 (Version None)
Quarter: 2011Q1

REPORT INFORMATION
  Report Type: 
  Country: None (occurrence: None)
  Receive Date: 20110129
  Receipt Date: 20100727
  Transmission Date: 20110831
  Serious: No
  Sender: FDA-Public Use
  Company Number: US-ABBOTT-10P-163-0660002-00

PATIENT
  Age: 48 Year
  Sex: Female

DRUGS (6)
  1. CITALOPRAM [Concomitant]
     Indication: DEPRESSION
  2. INDEROL [Concomitant]
     Indication: MIGRAINE
  3. PREVSTATIN [Concomitant]
     Indication: BLOOD CHOLESTEROL
  4. TIMAZAPAM [Concomitant]
     Indication: INSOMNIA
  5. HUMIRA [Suspect]
     Indication: PRODUCT USED FOR UNKNOWN INDICATION
     Route: 058
     Dates: start: 20100601
  6. LEVOTHYROXINE SODIUM [Concomitant]
     Indication: THYROID DISORDER

REACTIONS (4)
  - SWELLING [None]
  - WEIGHT INCREASED [None]
  - WHEEZING [None]
  - ABDOMINAL DISTENSION [None]
